FAERS Safety Report 9351906 (Version 4)
Quarter: 2013Q3

REPORT INFORMATION
  Report Type: Spontaneous
  Country: US (occurrence: US)
  Receive Date: 20130617
  Receipt Date: 20130904
  Transmission Date: 20140515
  Serious: Yes (Death, Hospitalization)
  Sender: FDA-Public Use
  Company Number: US-GLAXOSMITHKLINE-A1027334A

PATIENT
  Age: 54 Year
  Sex: Male

DRUGS (28)
  1. VOTRIENT [Suspect]
     Indication: METASTATIC RENAL CELL CARCINOMA
     Dosage: 800MG PER DAY
     Route: 065
     Dates: start: 201207
  2. ULTRAM [Concomitant]
  3. AMLODIPINE [Concomitant]
  4. COUMADIN [Concomitant]
  5. TRANSDERM SCOPOLAMINE PATCH [Concomitant]
  6. LIPITOR [Concomitant]
  7. CLONAZEPAM [Concomitant]
  8. GLIMEPIRIDE [Concomitant]
  9. ZOFRAN [Concomitant]
  10. MIRAPEX [Concomitant]
  11. ASA [Concomitant]
  12. PROZAC [Concomitant]
  13. ZANAFLEX [Concomitant]
  14. BENICAR [Concomitant]
  15. HUMALOG [Concomitant]
  16. LANTUS [Concomitant]
  17. NEXIUM [Concomitant]
  18. METOPROLOL [Concomitant]
  19. BUPROPION [Concomitant]
  20. VITAMIN D [Concomitant]
  21. OXYMETAZOLINE [Concomitant]
  22. AMITIZA [Concomitant]
  23. LORTAB [Concomitant]
  24. PROBIOTIC [Concomitant]
  25. TRAMADOL [Concomitant]
  26. ONDANSETRON [Concomitant]
  27. WARFARIN [Concomitant]
  28. TIZANIDINE [Concomitant]

REACTIONS (15)
  - Malignant neoplasm progression [Unknown]
  - Clostridium difficile infection [Unknown]
  - Dehydration [Unknown]
  - Fatigue [Unknown]
  - Neoplasm [Unknown]
  - Oral pain [Unknown]
  - Hair colour changes [Unknown]
  - Blood pressure increased [Unknown]
  - Visual impairment [Unknown]
  - Thrombosis [Unknown]
  - Abdominal pain [Unknown]
  - Viral infection [Unknown]
  - Drug ineffective [Unknown]
  - Surgery [Unknown]
  - Death [Fatal]
